FAERS Safety Report 21943097 (Version 1)
Quarter: 2023Q1

REPORT INFORMATION
  Report Type: Report from Study
  Country: US (occurrence: US)
  Receive Date: 20230202
  Receipt Date: 20230202
  Transmission Date: 20230418
  Serious: Yes (Hospitalization)
  Sender: FDA-Public Use
  Company Number: US-ACADIA PHARMACEUTICALS INC.-ACA-2022-PIM-002707

PATIENT
  Sex: Male

DRUGS (19)
  1. NUPLAZID [Suspect]
     Active Substance: PIMAVANSERIN TARTRATE
     Indication: Parkinson^s disease psychosis
     Dosage: 34 MILLIGRAM, QD
     Route: 048
     Dates: start: 20220712
  2. NUPLAZID [Suspect]
     Active Substance: PIMAVANSERIN TARTRATE
     Indication: Hallucination
     Dosage: 34 MILLIGRAM, QD
     Route: 048
     Dates: start: 202208
  3. NUPLAZID [Suspect]
     Active Substance: PIMAVANSERIN TARTRATE
     Indication: Delusion
  4. NUPLAZID [Suspect]
     Active Substance: PIMAVANSERIN TARTRATE
     Indication: Parkinson^s disease
  5. AMITRIPTYLINE [Concomitant]
     Active Substance: AMITRIPTYLINE
     Dosage: 50
  6. ATORVASTATIN [Concomitant]
     Active Substance: ATORVASTATIN
     Dosage: 40 MILLIGRAM
  7. BUPROPION [Concomitant]
     Active Substance: BUPROPION
  8. BUSPIRONE [Concomitant]
     Active Substance: BUSPIRONE HYDROCHLORIDE
  9. CARBIDOPA\LEVODOPA [Concomitant]
     Active Substance: CARBIDOPA\LEVODOPA
  10. ELIQUIS [Concomitant]
     Active Substance: APIXABAN
  11. ESCITALOPRAM [Concomitant]
     Active Substance: ESCITALOPRAM OXALATE
  12. FAMOTIDINE [Concomitant]
     Active Substance: FAMOTIDINE
  13. FOLIC ACID [Concomitant]
     Active Substance: FOLIC ACID
  14. GABAPENTIN [Concomitant]
     Active Substance: GABAPENTIN
  15. HYDROMORPHONE [Concomitant]
     Active Substance: HYDROMORPHONE
  16. METHIMAZOLE [Concomitant]
     Active Substance: METHIMAZOLE
  17. MIDODRINE [Concomitant]
     Active Substance: MIDODRINE
  18. ROPINIROLE [Concomitant]
     Active Substance: ROPINIROLE
  19. SILDENAFIL [Concomitant]
     Active Substance: SILDENAFIL

REACTIONS (3)
  - Urinary tract infection [Unknown]
  - Parkinson^s disease [Unknown]
  - Product dose omission issue [Not Recovered/Not Resolved]
